FAERS Safety Report 24825537 (Version 1)
Quarter: 2025Q1

REPORT INFORMATION
  Report Type: Report from Study
  Country: CH (occurrence: CH)
  Receive Date: 20250109
  Receipt Date: 20250109
  Transmission Date: 20250408
  Serious: Yes (Hospitalization)
  Sender: JOHNSON AND JOHNSON
  Company Number: CH-JNJFOC-20241284354

PATIENT
  Age: 33 Year
  Sex: Female

DRUGS (8)
  1. HALDOL [Suspect]
     Active Substance: HALOPERIDOL
     Indication: Product used for unknown indication
     Route: 048
  2. VALPROATE SODIUM [Suspect]
     Active Substance: VALPROATE SODIUM
     Indication: Product used for unknown indication
     Route: 048
  3. DICLOFENAC POTASSIUM [Suspect]
     Active Substance: DICLOFENAC POTASSIUM
     Indication: Product used for unknown indication
     Route: 048
  4. OLANZAPINE [Suspect]
     Active Substance: OLANZAPINE
     Indication: Product used for unknown indication
     Route: 048
  5. QUETIAPINE [Concomitant]
     Active Substance: QUETIAPINE
  6. LORAZEPAM [Concomitant]
     Active Substance: LORAZEPAM
  7. AKINETON [Concomitant]
     Active Substance: BIPERIDEN HYDROCHLORIDE
  8. LEVOMEPROMAZINE [Concomitant]
     Active Substance: LEVOMEPROMAZINE

REACTIONS (1)
  - Disturbance in attention [Recovered/Resolved]

NARRATIVE: CASE EVENT DATE: 20230703
